FAERS Safety Report 7894132-3 (Version None)
Quarter: 2011Q4

REPORT INFORMATION
  Report Type: 
  Country: None (occurrence: None)
  Receive Date: 20111104
  Receipt Date: 20111018
  Transmission Date: 20120403
  Serious: Yes (Hospitalization, Other)
  Sender: FDA-Public Use
  Company Number: NL-MEDIMMUNE-MEDI-0013784

PATIENT
  Sex: Female
  Weight: 7.54 kg

DRUGS (7)
  1. SYNAGIS [Suspect]
     Indication: LUNG DISORDER
     Route: 030
  2. PANCREATIN TRIPLE STRENGTH CAP [Concomitant]
  3. PHYTONADIONE [Concomitant]
  4. ERGOCALCIFEROL [Concomitant]
  5. VITAMIN E (HERBAL OIL NOS) [Concomitant]
  6. POLYETHYLENE GLYCOL [Concomitant]
  7. RETINOL ACETATE [Concomitant]

REACTIONS (6)
  - INTESTINAL OPERATION [None]
  - CRYING [None]
  - ABDOMINAL WOUND DEHISCENCE [None]
  - INGUINAL HERNIA [None]
  - DIARRHOEA [None]
  - RHINORRHOEA [None]
